FAERS Safety Report 9722092 (Version 1)
Quarter: 2013Q4

REPORT INFORMATION
  Report Type: Spontaneous
  Country: NL (occurrence: NL)
  Receive Date: 20131202
  Receipt Date: 20131202
  Transmission Date: 20140711
  Serious: Yes (Hospitalization, Other)
  Sender: FDA-Public Use
  Company Number: NL-AMGEN-NLDSP2013084348

PATIENT
  Age: 64 Year
  Sex: Female
  Weight: 73 kg

DRUGS (8)
  1. ENBREL [Suspect]
     Indication: RHEUMATOID ARTHRITIS
     Dosage: UNK
     Route: 065
     Dates: start: 2009, end: 20131018
  2. ENALAPRIL [Concomitant]
     Dosage: 30 MG, 1X/DAY
  3. METFORMIN [Concomitant]
     Dosage: 850 MG, 2X/DAY
  4. DOMPERIDONE [Concomitant]
     Dosage: 60 MG, 2X/DAY
  5. FOLIC ACID [Concomitant]
     Dosage: 10 MG, WEEKLY
  6. ACETYLSALICYLIC ACID [Concomitant]
     Dosage: 80 MG, 1X/DAY
  7. METOPROLOL [Concomitant]
     Dosage: 1 DF, 1X/DAY
  8. METHOTREXAT                        /00113801/ [Concomitant]
     Dosage: 12.5 MG, WEEKLY

REACTIONS (8)
  - Abasia [Not Recovered/Not Resolved]
  - Sensory disturbance [Recovering/Resolving]
  - Cognitive disorder [Recovering/Resolving]
  - Mobility decreased [Recovering/Resolving]
  - Memory impairment [Recovering/Resolving]
  - Bradyphrenia [Recovering/Resolving]
  - Apathy [Recovering/Resolving]
  - Demyelination [Recovering/Resolving]
